FAERS Safety Report 11691392 (Version 1)
Quarter: 2015Q4

REPORT INFORMATION
  Report Type: Spontaneous
  Country: US (occurrence: US)
  Receive Date: 20151102
  Receipt Date: 20151102
  Transmission Date: 20160304
  Serious: No
  Sender: FDA-Public Use
  Company Number: US-BAYER-2015-451275

PATIENT
  Age: 79 Year
  Sex: Female
  Weight: 154.2 kg

DRUGS (12)
  1. CLARITIN [Suspect]
     Active Substance: LORATADINE
     Indication: EYE PRURITUS
  2. VITAMIN B6 [Concomitant]
     Active Substance: PYRIDOXINE HYDROCHLORIDE
  3. METOPROLOL [Concomitant]
     Active Substance: METOPROLOL
  4. ASPIRIN. [Concomitant]
     Active Substance: ASPIRIN
     Indication: ISCHAEMIC HEART DISEASE PROPHYLAXIS
  5. VITAMIN B12 [Concomitant]
     Active Substance: CYANOCOBALAMIN
  6. LASIX [Concomitant]
     Active Substance: FUROSEMIDE
  7. FOLIC ACID. [Concomitant]
     Active Substance: FOLIC ACID
  8. CLARITIN [Suspect]
     Active Substance: LORATADINE
     Indication: HEADACHE
     Dosage: 1 DF, QD
     Route: 048
     Dates: start: 20151021
  9. CLARITIN [Suspect]
     Active Substance: LORATADINE
     Indication: SNEEZING
  10. CENTRUM [MINERALS NOS,VITAMINS NOS] [Concomitant]
  11. XARELTO [Suspect]
     Active Substance: RIVAROXABAN
  12. CLARITIN [Suspect]
     Active Substance: LORATADINE
     Indication: RHINORRHOEA

REACTIONS (2)
  - Initial insomnia [Unknown]
  - Product use issue [Unknown]

NARRATIVE: CASE EVENT DATE: 20151021
